FAERS Safety Report 5883134-4 (Version None)
Quarter: 2008Q3

REPORT INFORMATION
  Report Type: 
  Country: None (occurrence: None)
  Receive Date: 20080913
  Receipt Date: 20080826
  Transmission Date: 20090109
  Serious: No
  Sender: FDA-Public Use
  Company Number: US-ABBOTT-08P-163-0474343-00

PATIENT
  Sex: Female
  Weight: 79.45 kg

DRUGS (6)
  1. HUMIRA [Suspect]
     Indication: RHEUMATOID ARTHRITIS
     Route: 058
     Dates: start: 20040101
  2. HUMIRA [Suspect]
     Indication: RHEUMATOID ARTHRITIS
     Dosage: SYRINGE
     Route: 058
     Dates: start: 20080501
  3. HYDROCODONE BITARTRATE [Concomitant]
     Indication: ARTHRALGIA
     Route: 048
  4. HYDROXYCHLOROQUINE [Concomitant]
     Indication: RHEUMATOID ARTHRITIS
     Route: 048
     Dates: start: 20080501
  5. PREGABALIN [Concomitant]
     Indication: FIBROMYALGIA
     Dosage: 75MG X2
     Route: 048
     Dates: start: 20080501
  6. MULTI-VITAMIN [Concomitant]
     Indication: VITAMIN SUPPLEMENTATION
     Route: 048
     Dates: start: 20070101

REACTIONS (8)
  - ARTHRALGIA [None]
  - BURNING SENSATION [None]
  - DEPRESSION [None]
  - DRUG INEFFECTIVE [None]
  - INJECTION SITE IRRITATION [None]
  - JOINT SWELLING [None]
  - PARANASAL SINUS HYPERSECRETION [None]
  - RESORPTION BONE INCREASED [None]
